FAERS Safety Report 7689272-8 (Version None)
Quarter: 2011Q3

REPORT INFORMATION
  Report Type: 
  Country: None (occurrence: None)
  Receive Date: 20110817
  Receipt Date: 20110808
  Transmission Date: 20111222
  Serious: Yes (Hospitalization)
  Sender: FDA-Public Use
  Company Number: US-BAYER-201037871NA

PATIENT
  Age: 19 Year
  Sex: Female
  Weight: 45.351 kg

DRUGS (4)
  1. YAZ [Suspect]
     Indication: MENSTRUAL CYCLE MANAGEMENT
     Dosage: UNK
     Dates: start: 20091101, end: 20100501
  2. YAZ [Suspect]
     Indication: PREMENSTRUAL SYNDROME
     Dosage: UNK
     Dates: start: 20080701, end: 20090201
  3. IV FLUIDS [Concomitant]
  4. YAZ [Suspect]
     Indication: ORAL CONTRACEPTION
     Route: 048
     Dates: start: 20040101

REACTIONS (7)
  - BILE DUCT STONE [None]
  - HEPATIC ENZYME INCREASED [None]
  - CHOLELITHIASIS [None]
  - NAUSEA [None]
  - UNEVALUABLE EVENT [None]
  - ABDOMINAL PAIN UPPER [None]
  - VOMITING [None]
